FAERS Safety Report 15386666 (Version 1)
Quarter: 2018Q3

REPORT INFORMATION
  Report Type: Report from Study
  Country: DE (occurrence: DE)
  Receive Date: 20180914
  Receipt Date: 20180914
  Transmission Date: 20181010
  Serious: Yes (Death, Other)
  Sender: FDA-Public Use
  Company Number: DE-SA-2018SA053406

PATIENT
  Age: 52 Year
  Sex: Female
  Weight: 57 kg

DRUGS (26)
  1. FLUOROURACIL. [Suspect]
     Active Substance: FLUOROURACIL
     Dosage: 3120 MG, UNK
     Route: 041
     Dates: start: 20131119, end: 20131121
  2. BEVACIZUMAB. [Suspect]
     Active Substance: BEVACIZUMAB
     Dosage: 285 MG, UNK
     Route: 042
     Dates: start: 20140103
  3. OXALIPLATIN. [Suspect]
     Active Substance: OXALIPLATIN
     Dosage: 160 MG,UNK
     Route: 042
     Dates: start: 20131203, end: 20131203
  4. FLUOROURACIL. [Suspect]
     Active Substance: FLUOROURACIL
     Dosage: 3120 MG, UNK
     Route: 041
     Dates: start: 20131008, end: 20131010
  5. DEXAMETHASONE. [Concomitant]
     Active Substance: DEXAMETHASONE
     Dosage: 4 MG,UNK
     Route: 042
     Dates: start: 20130925
  6. FLUOROURACIL. [Suspect]
     Active Substance: FLUOROURACIL
     Dosage: 3120 MG, UNK
     Route: 041
     Dates: start: 20131022, end: 20131024
  7. BISOPROLOL [Concomitant]
     Active Substance: BISOPROLOL
     Indication: HYPERTENSION
     Dosage: 7.5 MG,UNK
     Route: 048
     Dates: start: 20131203
  8. AMLODIPINE [Concomitant]
     Active Substance: AMLODIPINE BESYLATE
     Indication: HYPERTENSION
     Dosage: 2.5 MG,UNK
     Route: 048
     Dates: start: 20131022
  9. METOCLOPRAMIDE. [Concomitant]
     Active Substance: METOCLOPRAMIDE
     Indication: VOMITING
  10. OXALIPLATIN. [Suspect]
     Active Substance: OXALIPLATIN
     Dosage: 160 MG,UNK
     Route: 042
     Dates: start: 20130924, end: 20130924
  11. OXALIPLATIN. [Suspect]
     Active Substance: OXALIPLATIN
     Dosage: 160 MG,UNK
     Route: 042
     Dates: start: 20131022, end: 20131022
  12. FLUOROURACIL. [Suspect]
     Active Substance: FLUOROURACIL
     Indication: RECTAL CANCER METASTATIC
     Dosage: 600 MG, UNK
     Route: 041
     Dates: start: 20130924, end: 20130924
  13. BEVACIZUMAB. [Suspect]
     Active Substance: BEVACIZUMAB
     Indication: RECTAL CANCER METASTATIC
     Dosage: 5 MG/KG, QOW, PATIENT RECEIVED 285 MG IN 250 ML NACL AS 30 MINUTES INFUSION DURING EACH THERAPY (DAY
     Route: 042
     Dates: start: 20130924
  14. BEVACIZUMAB. [Suspect]
     Active Substance: BEVACIZUMAB
     Dosage: 285 MG, UNK
     Route: 042
     Dates: start: 20131022
  15. HALOPERIDOL. [Concomitant]
     Active Substance: HALOPERIDOL
     Indication: DEPRESSION
  16. HALOPERIDOL. [Concomitant]
     Active Substance: HALOPERIDOL
     Indication: ANXIETY
     Dosage: 35 DF,UNK
     Route: 048
     Dates: start: 20131008
  17. METOCLOPRAMIDE. [Concomitant]
     Active Substance: METOCLOPRAMIDE
     Indication: NAUSEA
     Dosage: 35 DF,UNK
     Route: 048
     Dates: start: 20130901
  18. OXALIPLATIN. [Suspect]
     Active Substance: OXALIPLATIN
     Dosage: 160 MG,UNK
     Route: 042
     Dates: start: 20131119, end: 20131119
  19. SODIUM CHLORIDE. [Concomitant]
     Active Substance: SODIUM CHLORIDE
     Dosage: 250 ML,UNK
     Dates: start: 20130924
  20. OXALIPLATIN. [Suspect]
     Active Substance: OXALIPLATIN
     Dosage: 160 MG,UNK
     Route: 042
     Dates: start: 20131105, end: 20131105
  21. FLUOROURACIL. [Suspect]
     Active Substance: FLUOROURACIL
     Dosage: 3120 MG, UNK
     Route: 041
     Dates: start: 20131203, end: 20131205
  22. OXALIPLATIN. [Suspect]
     Active Substance: OXALIPLATIN
     Indication: RECTAL CANCER METASTATIC
     Dosage: 160 MG,UNK
     Route: 042
     Dates: start: 20130103, end: 20140103
  23. OXALIPLATIN. [Suspect]
     Active Substance: OXALIPLATIN
     Dosage: 160 MG
     Route: 042
     Dates: start: 20131008, end: 20131008
  24. FLUOROURACIL. [Suspect]
     Active Substance: FLUOROURACIL
     Dosage: 3120 MG, UNK
     Route: 041
     Dates: start: 20130924, end: 20130926
  25. FLUOROURACIL. [Suspect]
     Active Substance: FLUOROURACIL
     Dosage: 3120 MG, UNK
     Route: 041
     Dates: start: 20131105, end: 20131107
  26. FLUOROURACIL. [Suspect]
     Active Substance: FLUOROURACIL
     Dosage: 3120 MG, UNK
     Route: 041
     Dates: start: 20140103, end: 20140103

REACTIONS (8)
  - Urinary retention [Recovered/Resolved]
  - Restlessness [Recovered/Resolved]
  - Tachycardia [Recovered/Resolved]
  - Multiple organ dysfunction syndrome [Fatal]
  - Vomiting [Recovered/Resolved]
  - Agitation [Recovered/Resolved]
  - Nausea [Recovered/Resolved]
  - Diarrhoea [Recovered/Resolved]

NARRATIVE: CASE EVENT DATE: 20130925
